FAERS Safety Report 9252015 (Version 1)
Quarter: 2013Q2

REPORT INFORMATION
  Report Type: Report from Study
  Country: FR (occurrence: FR)
  Receive Date: 20130424
  Receipt Date: 20130424
  Transmission Date: 20140414
  Serious: Yes (Other)
  Sender: FDA-Public Use
  Company Number: FR-CELGENEUS-056-C4047-13042061

PATIENT
  Age: 65 Year
  Sex: Male

DRUGS (4)
  1. CC-4047 [Suspect]
     Indication: PLASMA CELL MYELOMA
     Dosage: 3 MILLIGRAM
     Route: 048
     Dates: start: 20100127
  2. REVLIMID [Suspect]
     Indication: PLASMA CELL MYELOMA
     Dosage: NOT PROVIDED
     Route: 048
     Dates: start: 200807, end: 200902
  3. DEXAMETHASONE [Suspect]
     Indication: PLASMA CELL MYELOMA
     Route: 048
     Dates: start: 20100127
  4. DEXAMETHASONE [Suspect]
     Dosage: UNKNOWN
     Route: 048
     Dates: start: 200807, end: 200902

REACTIONS (1)
  - Prostate cancer [Unknown]
